FAERS Safety Report 7802747-3 (Version None)
Quarter: 2011Q4

REPORT INFORMATION
  Report Type: 
  Country: None (occurrence: None)
  Receive Date: 20111007
  Receipt Date: 20110928
  Transmission Date: 20120403
  Serious: Yes (Hospitalization)
  Sender: FDA-Public Use
  Company Number: US-ABBOTT-11P-163-0859436-03

PATIENT
  Sex: Female

DRUGS (15)
  1. HUMALOG [Concomitant]
     Indication: DIABETES MELLITUS
     Dosage: SLIDING SCALE, MAXIMUM DAILY DOSE 20 UNITS
     Dates: start: 20060101
  2. MAGIC MOUTH WASH [Concomitant]
     Indication: MOUTH ULCERATION
     Dates: start: 20100127
  3. CALCIUM CARBONATE [Concomitant]
     Indication: MINERAL SUPPLEMENTATION
     Dates: start: 20080122
  4. FOLIC ACID [Concomitant]
     Indication: VITAMIN SUPPLEMENTATION
     Dates: start: 20040919
  5. CIMZIA [Concomitant]
     Indication: CROHN'S DISEASE
     Dosage: TAKEN ON 3/31 AND 4/14 THEN ONCE EVERY MONTH
     Route: 058
     Dates: start: 20100331
  6. ULTRAM [Concomitant]
     Indication: PAIN
     Dates: start: 20090902
  7. ALBUTEROL [Concomitant]
     Indication: COUGH
  8. MAGNESIUM OXIDE [Concomitant]
     Indication: BLOOD MAGNESIUM DECREASED
     Dates: start: 20090830, end: 20090902
  9. HUMIRA [Suspect]
     Route: 058
  10. FLINTSTONES MULTIPLE VITAMINS [Concomitant]
     Indication: VITAMIN SUPPLEMENTATION
     Dates: start: 20060101
  11. MAGNESIUM OXIDE [Concomitant]
     Dates: start: 20091019
  12. HUMIRA [Suspect]
     Indication: CROHN'S DISEASE
     Route: 058
     Dates: start: 20080222, end: 20100316
  13. TYSABRI [Concomitant]
     Indication: CROHN'S DISEASE
     Dosage: 300/15 ML
     Dates: start: 20110101
  14. LANTUS [Concomitant]
     Indication: DIABETES MELLITUS
     Dosage: 30 UNITS AT BEDTIME
     Dates: start: 20070101
  15. ALBUTEROL [Concomitant]
     Indication: DYSPNOEA
     Dates: start: 20091123

REACTIONS (1)
  - CROHN'S DISEASE [None]
